FAERS Safety Report 9565620 (Version 1)
Quarter: 2013Q3

REPORT INFORMATION
  Report Type: Spontaneous
  Country: US (occurrence: US)
  Receive Date: 20130930
  Receipt Date: 20130930
  Transmission Date: 20140515
  Serious: No
  Sender: FDA-Public Use
  Company Number: US-PFIZER INC-2013279642

PATIENT
  Sex: Female

DRUGS (2)
  1. LYRICA [Suspect]
     Dosage: 50MG IN THE MORNING AND 100MG IN THE NIGHT (2X/DAY)
     Dates: start: 20130925
  2. LYRICA [Suspect]
     Dosage: 50 MG, 2X/DAY
     Dates: start: 201309

REACTIONS (1)
  - Pollakiuria [Not Recovered/Not Resolved]
